FAERS Safety Report 8839862 (Version 1)
Quarter: 2012Q4

REPORT INFORMATION
  Report Type: 
  Country: US (occurrence: US)
  Receive Date: 20121015
  Receipt Date: 20121015
  Transmission Date: 20130627
  Serious: Yes (Other)
  Sender: FDA-Public Use
  Company Number: US-ASTRAZENECA-2012SE77190

PATIENT
  Age: 32 Year
  Sex: Male

DRUGS (2)
  1. SEROQUEL XR [Suspect]
     Route: 048
  2. SEROQUEL XR [Suspect]
     Route: 048

REACTIONS (5)
  - Serotonin syndrome [Unknown]
  - Insomnia [Unknown]
  - Drug intolerance [Unknown]
  - Regurgitation [Unknown]
  - Vomiting [Unknown]
